FAERS Safety Report 15685395 (Version 1)
Quarter: 2018Q4

REPORT INFORMATION
  Report Type: Spontaneous
  Country: US (occurrence: US)
  Receive Date: 20181204
  Receipt Date: 20181204
  Transmission Date: 20190205
  Serious: No
  Sender: FDA-Public Use
  Company Number: US-ADAAP-201700302

PATIENT
  Age: 55 Year
  Sex: Female

DRUGS (1)
  1. GA68-DOTATATE [Suspect]
     Active Substance: DOTATATE GALLIUM GA-68
     Indication: POSITRON EMISSION TOMOGRAM
     Route: 042
     Dates: start: 20171207, end: 20171207

REACTIONS (2)
  - Chest pain [Recovered/Resolved]
  - Dizziness [Recovered/Resolved]

NARRATIVE: CASE EVENT DATE: 20171207
